FAERS Safety Report 19515367 (Version 1)
Quarter: 2021Q3

REPORT INFORMATION
  Report Type: Spontaneous
  Country: GB (occurrence: GB)
  Receive Date: 20210710
  Receipt Date: 20210710
  Transmission Date: 20211014
  Serious: Yes (Other)
  Sender: FDA-Public Use
  Company Number: NVSC2021GB148820

PATIENT
  Age: 70 Year
  Sex: Male
  Weight: 90 kg

DRUGS (12)
  1. ASPIRIN. [Concomitant]
     Active Substance: ASPIRIN
     Indication: ILL-DEFINED DISORDER
     Dosage: 1 DF, QD
     Route: 065
     Dates: start: 20201203
  2. CLOTRIMAZOLE. [Concomitant]
     Active Substance: CLOTRIMAZOLE
     Indication: ILL-DEFINED DISORDER
     Dosage: APPLY 2?3 TIMES/DAY
     Route: 065
     Dates: start: 20210519, end: 20210616
  3. OMEPRAZOLE. [Concomitant]
     Active Substance: OMEPRAZOLE
     Indication: ILL-DEFINED DISORDER
     Dosage: 1 DF, QD
     Route: 065
     Dates: start: 20190201
  4. CARBOMER [Concomitant]
     Active Substance: CARBOMER
     Indication: ILL-DEFINED DISORDER
     Dosage: USE AS DIRECTED
     Route: 065
     Dates: start: 20201203
  5. METFORMIN [Concomitant]
     Active Substance: METFORMIN HYDROCHLORIDE
     Indication: ILL-DEFINED DISORDER
     Dosage: 2 DF, QD
     Route: 065
     Dates: start: 20191209
  6. SCHERIPROCT [Concomitant]
     Active Substance: DIBUCAINE HYDROCHLORIDE\PREDNISOLONE
     Indication: ILL-DEFINED DISORDER
     Dosage: 1 DF, QD INSERT ONE DAILY
     Route: 065
     Dates: start: 20190201
  7. LOSARTAN. [Suspect]
     Active Substance: LOSARTAN
     Dosage: UNK
     Route: 065
     Dates: start: 20210628
  8. AVEENO [Concomitant]
     Active Substance: DIMETHICONE\HOMOSALATE\OCTINOXATE\OCTISALATE\TITANIUM DIOXIDE
     Indication: ILL-DEFINED DISORDER
     Dosage: UNK UNK, BID
     Route: 065
     Dates: start: 20190201
  9. LOSARTAN. [Suspect]
     Active Substance: LOSARTAN
     Indication: ILL-DEFINED DISORDER
     Dosage: 1 DF, QD
     Route: 065
     Dates: start: 20210310, end: 20210628
  10. AMLODIPINE [Concomitant]
     Active Substance: AMLODIPINE BESYLATE
     Indication: ILL-DEFINED DISORDER
     Dosage: 1 DF, QD
     Route: 065
     Dates: start: 20190201
  11. EZETIMIBE. [Concomitant]
     Active Substance: EZETIMIBE
     Indication: ILL-DEFINED DISORDER
     Dosage: 1 DF, QD
     Route: 065
     Dates: start: 20190201
  12. SILDENAFIL. [Concomitant]
     Active Substance: SILDENAFIL
     Indication: ILL-DEFINED DISORDER
     Dosage: USE AS DIRECTED
     Route: 065
     Dates: start: 20190201

REACTIONS (1)
  - Adverse drug reaction [Unknown]

NARRATIVE: CASE EVENT DATE: 20210628
